FAERS Safety Report 6726418-X (Version None)
Quarter: 2010Q2

REPORT INFORMATION
  Report Type: 
  Country: None (occurrence: None)
  Receive Date: 20100514
  Receipt Date: 20100510
  Transmission Date: 20101027
  Serious: Yes (Death, Life-Threatening, Hospitalization)
  Sender: FDA-Public Use
  Company Number: UA-ELI_LILLY_AND_COMPANY-UA201004004352

PATIENT
  Sex: Female
  Weight: 69 kg

DRUGS (3)
  1. GEMCITABINE HCL [Suspect]
     Indication: BREAST CANCER STAGE IV
     Dosage: 1250 MG/M2, D1 AND ON D8 EVERY 3 WEEKS
     Route: 042
     Dates: start: 20080807
  2. PACLITAXEL [Suspect]
     Indication: BREAST CANCER STAGE IV
     Dosage: 175 MG/M2 (322 MG), D1
     Route: 042
     Dates: start: 20080807
  3. ANTIBIOTICS [Concomitant]
     Dosage: UNK, UNKNOWN
     Route: 065

REACTIONS (2)
  - DEATH [None]
  - PERIPROCTITIS [None]
